FAERS Safety Report 6536965-1 (Version None)
Quarter: 2010Q1

REPORT INFORMATION
  Report Type: 
  Country: None (occurrence: None)
  Receive Date: 20100107
  Receipt Date: 20081217
  Transmission Date: 20100710
  Serious: Yes (Other)
  Sender: FDA-Public Use
  Company Number: 2009AP00002

PATIENT
  Age: 17 Year
  Sex: Male

DRUGS (4)
  1. ALBUTEROL SULFATE [Suspect]
     Indication: ASTHMA
     Dosage: 2.5 MG; Q4H; INH
     Route: 055
  2. IPRATROPIUM BROMIDE [Suspect]
     Dosage: 1 INH; INH
     Route: 055
  3. METHYLPREDNISOLONE [Suspect]
     Dosage: 1 DF
  4. LEVALBUTEROL HCL [Suspect]
     Dosage: 5 INH; INH
     Route: 055

REACTIONS (7)
  - ATELECTASIS [None]
  - HYPERTENSION [None]
  - LACTIC ACIDOSIS [None]
  - METABOLIC ACIDOSIS [None]
  - NASAL CONGESTION [None]
  - TACHYCARDIA [None]
  - TACHYPNOEA [None]
